FAERS Safety Report 19350583 (Version 1)
Quarter: 2021Q2

REPORT INFORMATION
  Report Type: Spontaneous
  Country: US (occurrence: US)
  Receive Date: 20210531
  Receipt Date: 20210531
  Transmission Date: 20210717
  Serious: Yes (Life-Threatening, Hospitalization, Other)
  Sender: FDA-Public Use
  Company Number: US-ACCORD-226378

PATIENT
  Age: 57 Year
  Sex: Male

DRUGS (1)
  1. FLUOROURACIL. [Suspect]
     Active Substance: FLUOROURACIL
     Indication: RECTAL ADENOCARCINOMA

REACTIONS (5)
  - Ejection fraction decreased [Recovered/Resolved]
  - Myocarditis [Recovered/Resolved]
  - Cardiomyopathy [Recovered/Resolved]
  - Electrocardiogram ST segment elevation [Recovered/Resolved]
  - Coronary artery disease [Recovered/Resolved]
